FAERS Safety Report 23090499 (Version 2)
Quarter: 2023Q4

REPORT INFORMATION
  Report Type: Spontaneous
  Country: US (occurrence: US)
  Receive Date: 20231020
  Receipt Date: 20231121
  Transmission Date: 20240109
  Serious: Yes (Other)
  Sender: FDA-Public Use
  Company Number: US-GENMAB-2023-01880

PATIENT
  Sex: Male

DRUGS (2)
  1. EPKINLY [Suspect]
     Active Substance: EPCORITAMAB-BYSP
     Indication: Diffuse large B-cell lymphoma refractory
     Dosage: UNK (FOR ABOUT 2 MONTHS)
     Route: 065
  2. ZANUBRUTINIB [Concomitant]
     Active Substance: ZANUBRUTINIB
     Indication: Splenic marginal zone lymphoma
     Dosage: UNK (FOR ABOUT 2 MONTHS)
     Route: 065

REACTIONS (1)
  - Fungal myositis [Unknown]
